FAERS Safety Report 9997510 (Version 1)
Quarter: 2014Q1

REPORT INFORMATION
  Report Type: Spontaneous
  Country: US (occurrence: US)
  Receive Date: 20140311
  Receipt Date: 20140311
  Transmission Date: 20141002
  Serious: No
  Sender: FDA-Public Use
  Company Number: US-GLAXOSMITHKLINE-A1052493A

PATIENT
  Age: 58 Year
  Sex: Male
  Weight: 86.4 kg

DRUGS (4)
  1. NICOTINE GUM [Suspect]
     Indication: SMOKING CESSATION THERAPY
     Route: 002
  2. CHANTIX [Suspect]
     Indication: SMOKING CESSATION THERAPY
     Dates: start: 200709, end: 2008
  3. STEROID [Concomitant]
     Indication: LUNG INFECTION
     Route: 065
  4. INHALER [Concomitant]
     Indication: LUNG INFECTION

REACTIONS (1)
  - Asthma [Unknown]
